FAERS Safety Report 7961269-X (Version None)
Quarter: 2011Q4

REPORT INFORMATION
  Report Type: 
  Country: None (occurrence: None)
  Receive Date: 20111207
  Receipt Date: 20111123
  Transmission Date: 20120403
  Serious: Yes (Hospitalization)
  Sender: FDA-Public Use
  Company Number: PHEH2011US06121

PATIENT
  Sex: Male

DRUGS (24)
  1. ALLOPURINOL [Concomitant]
     Dosage: 200 MG, DAILY
     Route: 048
  2. FOLIC ACID [Concomitant]
     Dosage: 1 MG, DAILY
     Route: 048
  3. PROVENTIL [Concomitant]
     Dosage: 1 DF, UNK
  4. PRILOSEC [Concomitant]
     Dosage: 1 DF, QD
  5. EXJADE [Suspect]
     Dosage: 125 MG, BID
     Route: 048
  6. TOPROL-XL [Concomitant]
     Dosage: 25 MG, QD
  7. TAXOL [Concomitant]
     Dates: start: 20110107, end: 20110211
  8. CHEMOTHERAPEUTICS [Concomitant]
  9. PREDNISONE TAB [Concomitant]
     Dosage: 40 MG, PRN
  10. LOMOTIL [Concomitant]
     Indication: DIARRHOEA
     Dosage: 2.5 MG, PRN
     Route: 048
  11. VIDAZA [Concomitant]
  12. BLOOD TRANSFUSION, AUXILIARY PRODUCTS [Concomitant]
  13. ARANESP [Concomitant]
  14. LOVENOX [Concomitant]
     Dosage: 120 MG, DAILY
  15. LOMOTIL [Concomitant]
     Dosage: 0.25 MG, PRN
  16. CARBOPLATIN [Concomitant]
     Dates: start: 20110107, end: 20110211
  17. RADIATION THERAPY [Concomitant]
     Indication: SALIVARY GLAND NEOPLASM
     Dates: start: 20110201, end: 20110401
  18. CLARITIN [Concomitant]
     Dosage: 10 MG, DAILY
     Route: 048
  19. LEVAQUIN [Concomitant]
     Dosage: 500 MG, DAILY
     Route: 048
  20. RED BLOOD CELLS, CONCENTRATED [Concomitant]
  21. LASIX [Concomitant]
     Dosage: 80 MG, DAILY
  22. POTASSIUM CHLORIDE [Concomitant]
     Dosage: 2 DF, DAILY
  23. COUMADIN [Concomitant]
  24. EXJADE [Suspect]
     Dosage: 500 MG, TID
     Route: 048

REACTIONS (9)
  - PLATELET COUNT DECREASED [None]
  - HAEMOGLOBIN DECREASED [None]
  - MALAISE [None]
  - IMMUNE SYSTEM DISORDER [None]
  - RED CELL DISTRIBUTION WIDTH INCREASED [None]
  - BACTERAEMIA [None]
  - ECCHYMOSIS [None]
  - VISUAL IMPAIRMENT [None]
  - ARTHRALGIA [None]
